FAERS Safety Report 17243998 (Version 4)
Quarter: 2020Q1

REPORT INFORMATION
  Report Type: Spontaneous
  Country: US (occurrence: US)
  Receive Date: 20200107
  Receipt Date: 20200219
  Transmission Date: 20200409
  Serious: Yes (Other)
  Sender: FDA-Public Use
  Company Number: US-PFIZER INC-2020003876

PATIENT
  Age: 32 Year
  Sex: Female
  Weight: 104.31 kg

DRUGS (20)
  1. SOMAVERT [Suspect]
     Active Substance: PEGVISOMANT
     Indication: ACROMEGALY
     Dosage: 10 MG, DAILY (10MG SDV INJ KIT W/ PFS DILUENT)
     Route: 058
     Dates: start: 20191201
  2. EXCEDRIN MIGRAINE [Concomitant]
     Active Substance: ACETAMINOPHEN\ASPIRIN\CAFFEINE
     Indication: MIGRAINE
     Dosage: UNK(250-250-65 TABLET)
  3. FLONASE ALLERGY RELIEF [Concomitant]
     Active Substance: FLUTICASONE PROPIONATE
     Indication: HYPERSENSITIVITY
     Dosage: UNK , AS NEEDED
  4. LEVOTIROXINA [LEVOTHYROXINE SODIUM] [Concomitant]
     Dosage: 100 UG, UNK
     Dates: start: 201905
  5. CORTEF [Concomitant]
     Active Substance: HYDROCORTISONE
     Dosage: 10 MG, UNK
  6. SOMAVERT [Suspect]
     Active Substance: PEGVISOMANT
     Dosage: 40 MG, SINGLE (ONCE FOR LOADING DOSE)
     Route: 058
     Dates: start: 20191228
  7. SOMAVERT [Suspect]
     Active Substance: PEGVISOMANT
     Dosage: 10 MG, 1X/DAY
     Dates: start: 20200110
  8. IBUPROFEN. [Concomitant]
     Active Substance: IBUPROFEN
     Dosage: UNK, AS NEEDED
  9. METOPROLOL TARTRATE. [Concomitant]
     Active Substance: METOPROLOL TARTRATE
     Dosage: 25 MG, UNK
     Dates: start: 201905
  10. LANTUS [Concomitant]
     Active Substance: INSULIN GLARGINE
     Dosage: UNK (100/ML VIAL)
     Dates: start: 201904
  11. OZEMPIC [Suspect]
     Active Substance: SEMAGLUTIDE
     Indication: TYPE 2 DIABETES MELLITUS
     Dosage: UNK (0.25 OR .5 PEN INJCTR )
  12. ONDANSETRON HCL [Concomitant]
     Active Substance: ONDANSETRON HYDROCHLORIDE
     Dosage: 4 MG, UNK
     Dates: start: 20200103
  13. EXCEDRIN MIGRAINE [Concomitant]
     Active Substance: ACETAMINOPHEN\ASPIRIN\CAFFEINE
     Dosage: UNK, AS NEEDED
  14. IBUPROFEN. [Concomitant]
     Active Substance: IBUPROFEN
     Dosage: 200 MG, UNK
  15. DESMOPRESSIN ACETATE. [Concomitant]
     Active Substance: DESMOPRESSIN ACETATE
     Dosage: 0.1 MG, UNK
     Dates: start: 201906
  16. SOMAVERT [Suspect]
     Active Substance: PEGVISOMANT
     Dosage: 10 MG, 1X/DAY
     Dates: start: 20191229
  17. TYLENOL [Concomitant]
     Active Substance: ACETAMINOPHEN
     Dosage: 325 MG, UNK
  18. TYLENOL [Concomitant]
     Active Substance: ACETAMINOPHEN
     Dosage: UNK, AS NEEDED
  19. CORTEF [Concomitant]
     Active Substance: HYDROCORTISONE
     Dosage: UNK (INCREASED X2 FOR 1 WEEK)
     Dates: start: 201910
  20. OZEMPIC [Suspect]
     Active Substance: SEMAGLUTIDE
     Dosage: 1 MG, EVERY 7 DAYS
     Dates: start: 201905

REACTIONS (16)
  - Asthenia [Not Recovered/Not Resolved]
  - Abdominal pain upper [Not Recovered/Not Resolved]
  - Arthralgia [Unknown]
  - Headache [Unknown]
  - Nausea [Not Recovered/Not Resolved]
  - Hypotension [Recovered/Resolved]
  - Decreased appetite [Unknown]
  - Paraesthesia [Unknown]
  - Product dose omission [Unknown]
  - Gastric disorder [Unknown]
  - Abdominal discomfort [Unknown]
  - Syncope [Not Recovered/Not Resolved]
  - Feeling hot [Not Recovered/Not Resolved]
  - Fatigue [Not Recovered/Not Resolved]
  - Dizziness [Not Recovered/Not Resolved]
  - Disorientation [Unknown]

NARRATIVE: CASE EVENT DATE: 20190601
